FAERS Safety Report 8720505 (Version 3)
Quarter: 2012Q4

REPORT INFORMATION
  Report Type: 
  Country: US (occurrence: US)
  Receive Date: 20120813
  Receipt Date: 20121017
  Transmission Date: 20130627
  Serious: No
  Sender: FDA-Public Use
  Company Number: US-PFIZER INC-2012195187

PATIENT
  Age: 73 Year
  Sex: Female
  Weight: 67.12 kg

DRUGS (5)
  1. LYRICA [Suspect]
     Indication: NEURALGIA
     Dosage: 50 mg, 2x/day
     Route: 048
     Dates: start: 20120709
  2. LYRICA [Suspect]
     Dosage: UNK
     Route: 048
     Dates: end: 201208
  3. ZOVIRAX [Concomitant]
     Dosage: UNK
  4. OXYCODONE [Concomitant]
     Indication: PAIN
     Dosage: UNK
  5. TYLENOL [Concomitant]
     Indication: PAIN
     Dosage: UNK

REACTIONS (1)
  - Alopecia [Unknown]
